FAERS Safety Report 15770221 (Version 12)
Quarter: 2022Q1

REPORT INFORMATION
  Report Type: Spontaneous
  Country: US (occurrence: US)
  Receive Date: 20181228
  Receipt Date: 20220110
  Transmission Date: 20220423
  Serious: Yes (Other)
  Sender: FDA-Public Use
  Company Number: US-PFIZER INC-2018490187

PATIENT
  Age: 78 Year
  Sex: Female
  Weight: 74.84 kg

DRUGS (5)
  1. PREMARIN [Suspect]
     Active Substance: ESTROGENS, CONJUGATED
     Indication: Vaginal infection
     Dosage: 0.625 MG
     Route: 067
  2. PREMARIN [Suspect]
     Active Substance: ESTROGENS, CONJUGATED
     Dosage: UNK, 1X/DAY
     Dates: start: 201811
  3. PREMARIN [Suspect]
     Active Substance: ESTROGENS, CONJUGATED
     Dosage: UNK (THREE TIMES A WEEK ON MONDAY, WEDNESDAY, AND FRIDAY)
     Route: 067
  4. PREMARIN [Suspect]
     Active Substance: ESTROGENS, CONJUGATED
     Dosage: UNK
  5. INSULIN NOS [Concomitant]
     Active Substance: INSULIN NOS
     Indication: Diabetes mellitus
     Dosage: BASAL RATE PUMP
     Dates: start: 2004

REACTIONS (10)
  - Bladder cancer [Unknown]
  - Feeling abnormal [Unknown]
  - Pain in extremity [Unknown]
  - Self esteem decreased [Unknown]
  - Rash [Unknown]
  - Pain [Unknown]
  - Pruritus [Unknown]
  - Off label use [Unknown]
  - Product dispensing error [Unknown]
  - Product prescribing error [Unknown]
